FAERS Safety Report 5850833-X (Version None)
Quarter: 2008Q3

REPORT INFORMATION
  Report Type: 
  Country: None (occurrence: None)
  Receive Date: 20080819
  Receipt Date: 20080819
  Transmission Date: 20090109
  Serious: Yes (Other)
  Sender: FDA-Public Use
  Company Number: None

PATIENT

DRUGS (1)
  1. MILK OF MAGNESIA [Suspect]
     Dosage: SMALL AMT
     Dates: start: 20080730, end: 20080730

REACTIONS (3)
  - DYSPEPSIA [None]
  - ORAL DISCOMFORT [None]
  - THROAT IRRITATION [None]
